FAERS Safety Report 16733004 (Version 3)
Quarter: 2019Q3

REPORT INFORMATION
  Report Type: Spontaneous
  Country: US (occurrence: US)
  Receive Date: 20190823
  Receipt Date: 20190903
  Transmission Date: 20191005
  Serious: No
  Sender: FDA-Public Use
  Company Number: US-BIOGEN-2019BI00777537

PATIENT
  Sex: Female

DRUGS (1)
  1. TECFIDERA [Suspect]
     Active Substance: DIMETHYL FUMARATE
     Indication: PRODUCT USED FOR UNKNOWN INDICATION
     Route: 065
     Dates: start: 20181101, end: 20190601

REACTIONS (6)
  - Cough [Unknown]
  - Skin disorder [Unknown]
  - Lymphopenia [Unknown]
  - Malaise [Unknown]
  - Blood count abnormal [Unknown]
  - White blood cell count decreased [Recovered/Resolved]
